FAERS Safety Report 21922522 (Version 1)
Quarter: 2023Q1

REPORT INFORMATION
  Report Type: Spontaneous
  Country: US (occurrence: US)
  Receive Date: 20230128
  Receipt Date: 20230128
  Transmission Date: 20230418
  Serious: Yes (Hospitalization)
  Sender: FDA-Public Use
  Company Number: US-ABBVIE-4286894

PATIENT
  Age: 18 Year
  Sex: Female
  Weight: 20 kg

DRUGS (2)
  1. HUMIRA [Suspect]
     Active Substance: ADALIMUMAB
     Indication: Product used for unknown indication
     Route: 058
  2. XELJANZ [Suspect]
     Active Substance: TOFACITINIB CITRATE
     Indication: Colitis
     Route: 048
     Dates: start: 20221214

REACTIONS (3)
  - Drug ineffective [Unknown]
  - Product residue present [Unknown]
  - Malabsorption [Unknown]

NARRATIVE: CASE EVENT DATE: 20220101
